FAERS Safety Report 7943341-3 (Version None)
Quarter: 2011Q4

REPORT INFORMATION
  Report Type: 
  Country: None (occurrence: None)
  Receive Date: 20111128
  Receipt Date: 20111125
  Transmission Date: 20120403
  Serious: Yes (Death, Other)
  Sender: FDA-Public Use
  Company Number: PHFR2011GB006585

PATIENT
  Sex: Female

DRUGS (1)
  1. CLOZARIL [Suspect]
     Indication: SCHIZOPHRENIA
     Route: 048
     Dates: start: 20080424, end: 20111114

REACTIONS (3)
  - TERMINAL STATE [None]
  - LUNG NEOPLASM MALIGNANT [None]
  - LOSS OF CONSCIOUSNESS [None]
